FAERS Safety Report 23737756 (Version 1)
Quarter: 2024Q2

REPORT INFORMATION
  Report Type: Spontaneous
  Country: GB (occurrence: GB)
  Receive Date: 20240412
  Receipt Date: 20240412
  Transmission Date: 20240715
  Serious: Yes (Other)
  Sender: FDA-Public Use
  Company Number: None

PATIENT
  Age: 44 Year
  Sex: Female

DRUGS (2)
  1. TALZENNA [Interacting]
     Active Substance: TALAZOPARIB TOSYLATE
     Dosage: 1 MG, 1X/DAY
  2. IVERMECTIN [Interacting]
     Active Substance: IVERMECTIN

REACTIONS (3)
  - Drug interaction [Recovering/Resolving]
  - Labelled drug-drug interaction medication error [Recovering/Resolving]
  - Illness [Unknown]
